FAERS Safety Report 6537525-9 (Version None)
Quarter: 2010Q1

REPORT INFORMATION
  Report Type: 
  Country: None (occurrence: None)
  Receive Date: 20100114
  Receipt Date: 20100104
  Transmission Date: 20100710
  Serious: Yes (Other)
  Sender: FDA-Public Use
  Company Number: US-JNJCH-2010000656

PATIENT
  Age: 53 Year
  Sex: Female
  Weight: 90.7 kg

DRUGS (1)
  1. BENGAY ULTRA STRENGTH [Suspect]
     Indication: MUSCLE SPASMS
     Dosage: TEXT:ONCE AS DIRECTED
     Route: 061
     Dates: start: 20100103, end: 20100103

REACTIONS (5)
  - APPLICATION SITE BURN [None]
  - APPLICATION SITE DISCOMFORT [None]
  - APPLICATION SITE ERYTHEMA [None]
  - APPLICATION SITE VESICLES [None]
  - OFF LABEL USE [None]
